FAERS Safety Report 6148177-4 (Version None)
Quarter: 2009Q2

REPORT INFORMATION
  Report Type: 
  Country: None (occurrence: None)
  Receive Date: 20090402
  Receipt Date: 20081218
  Transmission Date: 20091009
  Serious: No
  Sender: FDA-Public Use
  Company Number: 1000004730

PATIENT
  Age: 83 Year
  Sex: Female

DRUGS (4)
  1. BYSTOLIC [Suspect]
     Indication: BLOOD PRESSURE INCREASED
     Dosage: 5 MG ( 5 MG, 1 IN 1 D), ORAL; 10 MG (10 MG, 1 IN 1 D), ORAL
     Route: 048
     Dates: start: 20081102, end: 20081124
  2. BYSTOLIC [Suspect]
     Indication: BLOOD PRESSURE INCREASED
     Dosage: 5 MG ( 5 MG, 1 IN 1 D), ORAL; 10 MG (10 MG, 1 IN 1 D), ORAL
     Route: 048
     Dates: start: 20081125
  3. ANTIVERT [Concomitant]
  4. TYLENOL [Concomitant]

REACTIONS (3)
  - EYE PAIN [None]
  - NAUSEA [None]
  - POLLAKIURIA [None]
